FAERS Safety Report 18617695 (Version 2)
Quarter: 2021Q1

REPORT INFORMATION
  Report Type: Spontaneous
  Country: US (occurrence: US)
  Receive Date: 20201215
  Receipt Date: 20210120
  Transmission Date: 20210419
  Serious: No
  Sender: FDA-Public Use
  Company Number: US-TEVA-2020-US-1857625

PATIENT
  Age: 41 Year

DRUGS (5)
  1. GABAPENTIN 300 MG [Concomitant]
     Active Substance: GABAPENTIN
  2. LEVOTHYROXINE. [Concomitant]
     Active Substance: LEVOTHYROXINE
     Dosage: 50 MILLIGRAM DAILY;
  3. PRIMIDONE 50 MG [Concomitant]
     Active Substance: PRIMIDONE
     Dosage: 100 MILLIGRAM DAILY;
  4. UBRELVY 50 MG [Concomitant]
     Dosage: 50 MG AS NEEDED
  5. AJOVY [Suspect]
     Active Substance: FREMANEZUMAB-VFRM
     Indication: MIGRAINE
     Route: 065

REACTIONS (4)
  - Injection site mass [Recovered/Resolved]
  - Incorrect dose administered by device [Unknown]
  - Liquid product physical issue [Unknown]
  - Incorrect dose administered [Unknown]

NARRATIVE: CASE EVENT DATE: 20201205
